FAERS Safety Report 17436513 (Version 1)
Quarter: 2020Q1

REPORT INFORMATION
  Report Type: Spontaneous
  Country: JP (occurrence: JP)
  Receive Date: 20200219
  Receipt Date: 20200219
  Transmission Date: 20200409
  Serious: Yes (Other)
  Sender: FDA-Public Use
  Company Number: NVSJ2019JP005443

PATIENT
  Age: 39 Year
  Sex: Female
  Weight: 60.2 kg

DRUGS (6)
  1. SPIRONOLACTONE. [Suspect]
     Active Substance: SPIRONOLACTONE
     Indication: PRODUCT USED FOR UNKNOWN INDICATION
     Dosage: 25 MG, DAILY
     Route: 065
  2. HEPARIN [Concomitant]
     Active Substance: HEPARIN SODIUM
     Indication: PERIPARTUM CARDIOMYOPATHY
     Dosage: UNK
     Route: 065
  3. CARPERITIDE [Suspect]
     Active Substance: CARPERITIDE
     Indication: PRODUCT USED FOR UNKNOWN INDICATION
     Dosage: UNK,(0. 025 GAMMA)
     Route: 065
  4. APO BROMOCRIPTINE [Concomitant]
     Indication: PERIPARTUM CARDIOMYOPATHY
     Dosage: 5 MG
     Route: 065
  5. PARLODEL [Suspect]
     Active Substance: BROMOCRIPTINE MESYLATE
     Indication: PERIPARTUM CARDIOMYOPATHY
     Dosage: 5 MG/DAY
     Route: 065
  6. LISINOPRIL. [Concomitant]
     Active Substance: LISINOPRIL
     Indication: PERIPARTUM CARDIOMYOPATHY
     Dosage: 2.5 MG
     Route: 065

REACTIONS (2)
  - Low cardiac output syndrome [Recovering/Resolving]
  - Respiratory disorder [Recovering/Resolving]
